FAERS Safety Report 5876100-6 (Version None)
Quarter: 2008Q3

REPORT INFORMATION
  Report Type: 
  Country: None (occurrence: None)
  Receive Date: 20080910
  Receipt Date: 20080902
  Transmission Date: 20090109
  Serious: Yes (Death, Other)
  Sender: FDA-Public Use
  Company Number: US-PURDUE-USA_2008_0034730

PATIENT
  Sex: Female

DRUGS (1)
  1. OXYCONTIN [Suspect]
     Dosage: UNK UNK, UNK
     Route: 065

REACTIONS (3)
  - DRUG DEPENDENCE [None]
  - HEART RATE DECREASED [None]
  - MYOCARDIAL INFARCTION [None]
